FAERS Safety Report 8363695-6 (Version None)
Quarter: 2012Q2

REPORT INFORMATION
  Report Type: 
  Country: None (occurrence: None)
  Receive Date: 20120516
  Receipt Date: 20120504
  Transmission Date: 20120825
  Serious: Yes (Hospitalization)
  Sender: FDA-Public Use
  Company Number: US-JNJFOC-20120400507

PATIENT

DRUGS (8)
  1. HYDROCHLOROTHIAZIDE [Concomitant]
     Indication: HYPERTENSION
  2. TRAMADOL HYDROCHLORIDE [Concomitant]
     Indication: ARTHRALGIA
  3. CALCIUM WITH VITAMIN D [Concomitant]
  4. REMICADE [Suspect]
     Indication: PRODUCT USED FOR UNKNOWN INDICATION
     Route: 042
     Dates: start: 20110629
  5. HYDROXYCHLOROQUINE SULFATE [Concomitant]
     Indication: ARTHRITIS
  6. QUINAPRIL [Concomitant]
     Indication: HYPERTENSION
  7. REMICADE [Suspect]
     Route: 042
     Dates: start: 20120307, end: 20120308
  8. ASACOL [Concomitant]
     Indication: COLITIS

REACTIONS (10)
  - FEELING HOT [None]
  - VOMITING [None]
  - RASH [None]
  - HYPERHIDROSIS [None]
  - INFUSION RELATED REACTION [None]
  - DIARRHOEA [None]
  - BLOOD PRESSURE INCREASED [None]
  - CHEST DISCOMFORT [None]
  - HEADACHE [None]
  - SWELLING FACE [None]
